FAERS Safety Report 8439968-5 (Version None)
Quarter: 2012Q2

REPORT INFORMATION
  Report Type: 
  Country: None (occurrence: None)
  Receive Date: 20120615
  Receipt Date: 20120607
  Transmission Date: 20120825
  Serious: Yes (Hospitalization)
  Sender: FDA-Public Use
  Company Number: US-US-EMD SERONO, INC.-7059536

PATIENT
  Sex: Female
  Weight: 66 kg

DRUGS (3)
  1. REBIF [Suspect]
     Indication: PRODUCT USED FOR UNKNOWN INDICATION
     Route: 058
     Dates: start: 20050301, end: 20110101
  2. REBIF [Suspect]
     Route: 058
     Dates: start: 20110515
  3. IBUPROFEN [Concomitant]
     Indication: PREMEDICATION

REACTIONS (3)
  - CONSTIPATION [None]
  - INJECTION SITE PAIN [None]
  - ABDOMINAL WALL MASS [None]
